FAERS Safety Report 5381421-X (Version None)
Quarter: 2007Q3

REPORT INFORMATION
  Report Type: 
  Country: None (occurrence: None)
  Receive Date: 20070709
  Receipt Date: 20070627
  Transmission Date: 20080115
  Serious: Yes (Other)
  Sender: FDA-Public Use
  Company Number: US-NOVOPROD-265030

PATIENT
  Sex: Male

DRUGS (1)
  1. LEVEMIR [Suspect]
     Indication: DIABETES MELLITUS
     Dosage: UNKNOWN
     Route: 058

REACTIONS (1)
  - ARRHYTHMIA [None]
